FAERS Safety Report 9679236 (Version 1)
Quarter: 2013Q4

REPORT INFORMATION
  Report Type: Spontaneous
  Country: US (occurrence: US)
  Receive Date: 20131108
  Receipt Date: 20131108
  Transmission Date: 20140711
  Serious: Yes (Other)
  Sender: FDA-Public Use
  Company Number: US-JNJFOC-20131103614

PATIENT
  Sex: Female
  Weight: 71.22 kg

DRUGS (11)
  1. IBUPROFEN [Suspect]
     Indication: PRODUCT USED FOR UNKNOWN INDICATION
     Route: 065
  2. DICYCLOMINE [Concomitant]
     Indication: GASTRIC DISORDER
     Route: 065
  3. DILAUDID [Concomitant]
     Indication: PAIN
     Route: 048
  4. DURAGESIC [Concomitant]
     Indication: FIBROMYALGIA
     Route: 061
  5. FENTANYL [Concomitant]
     Indication: FIBROMYALGIA
     Route: 065
  6. MOBIC [Concomitant]
     Indication: ARTHROPATHY
     Route: 065
  7. NORVASC [Concomitant]
     Indication: PRODUCT USED FOR UNKNOWN INDICATION
     Route: 065
  8. PROTONIX [Concomitant]
     Indication: GASTRIC DISORDER
     Route: 065
  9. REGLAN [Concomitant]
     Indication: GASTRIC DISORDER
     Route: 065
  10. VIVELLE-DOT [Concomitant]
     Indication: OESTROGEN REPLACEMENT THERAPY
     Route: 061
  11. XANAX [Concomitant]
     Indication: PRODUCT USED FOR UNKNOWN INDICATION
     Route: 065

REACTIONS (2)
  - Sensory disturbance [Recovered/Resolved]
  - Vomiting [Recovered/Resolved]
